FAERS Safety Report 23955131 (Version 2)
Quarter: 2024Q2

REPORT INFORMATION
  Report Type: Other
  Country: JP (occurrence: JP)
  Receive Date: 20240610
  Receipt Date: 20240611
  Transmission Date: 20240716
  Serious: Yes (Hospitalization, Other)
  Sender: FDA-Public Use
  Company Number: JP-CHUGAI-2023010888

PATIENT
  Age: 7 Year
  Sex: Female
  Weight: 11 kg

DRUGS (20)
  1. HEMLIBRA [Suspect]
     Active Substance: EMICIZUMAB-KXWH
     Indication: Acquired haemophilia
     Dosage: 6 MILLIGRAM/KILOGRAM, SINGLE
     Route: 058
     Dates: start: 20221004, end: 20221004
  2. HEMLIBRA [Suspect]
     Active Substance: EMICIZUMAB-KXWH
     Indication: Factor VIII deficiency
     Dosage: 3 MILLIGRAM/KILOGRAM, SINGLE
     Route: 058
     Dates: start: 20221005, end: 20221005
  3. HEMLIBRA [Suspect]
     Active Substance: EMICIZUMAB-KXWH
     Dosage: 1.5 MILLIGRAM/KILOGRAM, ONCE/WEEK
     Route: 058
     Dates: start: 20221011, end: 20230208
  4. HEMLIBRA [Suspect]
     Active Substance: EMICIZUMAB-KXWH
     Dosage: 6 MILLIGRAM/KILOGRAM, SINGLE
     Route: 058
     Dates: start: 20231011, end: 20231011
  5. HEMLIBRA [Suspect]
     Active Substance: EMICIZUMAB-KXWH
     Dosage: 3 MILLIGRAM/KILOGRAM, SINGLE
     Route: 058
     Dates: start: 20231012, end: 20231012
  6. HEMLIBRA [Suspect]
     Active Substance: EMICIZUMAB-KXWH
     Dosage: 1.5 MILLIGRAM/KILOGRAM, SINGLE
     Route: 058
     Dates: start: 20231018, end: 20231025
  7. RITUXAN [Suspect]
     Active Substance: RITUXIMAB
     Indication: Acquired haemophilia
     Dosage: 200 MILLIGRAM/DAY
     Route: 041
     Dates: start: 20221019, end: 20221019
  8. RITUXAN [Suspect]
     Active Substance: RITUXIMAB
     Indication: Factor VIII deficiency
     Dosage: 200 MILLIGRAM/DAY
     Route: 041
     Dates: start: 20221102, end: 20221102
  9. RITUXAN [Suspect]
     Active Substance: RITUXIMAB
     Dosage: 200 MILLIGRAM/DAY
     Route: 041
     Dates: start: 20221109, end: 20221109
  10. RITUXAN [Suspect]
     Active Substance: RITUXIMAB
     Dosage: MOST RECENT DOSE ON 22/NOV/2022
     Route: 041
     Dates: start: 20221122, end: 20221122
  11. PREDNISOLONE [Suspect]
     Active Substance: PREDNISOLONE
     Indication: Acquired haemophilia
     Dosage: 10 MILLIGRAM/DAY
     Route: 048
     Dates: start: 20220908, end: 20221005
  12. PREDNISOLONE [Suspect]
     Active Substance: PREDNISOLONE
     Indication: Factor VIII deficiency
     Dosage: 7.5 MILLIGRAM/DAY
     Route: 048
     Dates: start: 20221006, end: 20221019
  13. PREDNISOLONE [Suspect]
     Active Substance: PREDNISOLONE
     Dosage: 5 MILLIGRAM/DAY
     Route: 048
     Dates: start: 20221020, end: 20221101
  14. PREDNISOLONE [Suspect]
     Active Substance: PREDNISOLONE
     Dosage: 3 MILLIGRAM/DAY
     Route: 048
     Dates: start: 20221102, end: 20221220
  15. PREDNISOLONE [Suspect]
     Active Substance: PREDNISOLONE
     Dosage: 2 MILLIGRAM/DAY
     Route: 048
     Dates: start: 20221221, end: 20230117
  16. PREDNISOLONE [Suspect]
     Active Substance: PREDNISOLONE
     Dosage: 1 MILLIGRAM/DAY
     Route: 048
     Dates: start: 20230118, end: 20230121
  17. PREDNISOLONE [Suspect]
     Active Substance: PREDNISOLONE
     Dosage: 12 MILLIGRAM/DAY
     Route: 048
     Dates: start: 20231011, end: 20231030
  18. PREDNISOLONE [Suspect]
     Active Substance: PREDNISOLONE
     Dosage: 9 MILLIGRAM/DAY
     Route: 048
     Dates: start: 20231101, end: 20231107
  19. PREDNISOLONE [Suspect]
     Active Substance: PREDNISOLONE
     Dosage: 6 MILLIGRAM/DAY
     Route: 048
     Dates: start: 20231108, end: 20231114
  20. PREDNISOLONE [Suspect]
     Active Substance: PREDNISOLONE
     Dosage: 2.5 MILLIGRAM/DAY
     Route: 048
     Dates: start: 20231115, end: 20240109

REACTIONS (6)
  - Pyrexia [Recovering/Resolving]
  - COVID-19 [Recovered/Resolved]
  - Nasopharyngitis [Recovered/Resolved]
  - Epistaxis [Recovered/Resolved]
  - Neutrophil count decreased [Recovered/Resolved]
  - Off label use [Unknown]

NARRATIVE: CASE EVENT DATE: 20221024
